FAERS Safety Report 7052457-8 (Version None)
Quarter: 2010Q4

REPORT INFORMATION
  Report Type: 
  Country: None (occurrence: None)
  Receive Date: 20101019
  Receipt Date: 20101006
  Transmission Date: 20110411
  Serious: Yes (Hospitalization)
  Sender: FDA-Public Use
  Company Number: DE-ELI_LILLY_AND_COMPANY-DE201010001318

PATIENT
  Age: 16 Year
  Sex: Male

DRUGS (2)
  1. FLUCTIN [Suspect]
     Dosage: 20 MG, UNK
     Route: 048
     Dates: start: 20090501
  2. AMOCLAV [Concomitant]
     Dosage: UNK, UNK

REACTIONS (2)
  - ERYTHEMA MULTIFORME [None]
  - VASCULITIS [None]
